FAERS Safety Report 4544309-X (Version None)
Quarter: 2005Q1

REPORT INFORMATION
  Report Type: 
  Country: None (occurrence: None)
  Receive Date: 20050104
  Receipt Date: 20041227
  Transmission Date: 20050727
  Serious: Yes (Disabling)
  Sender: FDA-Public Use
  Company Number: US-MERCK-0412USA02932

PATIENT
  Age: 74 Year
  Sex: Female

DRUGS (7)
  1. FOSAMAX [Suspect]
     Indication: SPINAL FUSION SURGERY
     Route: 048
     Dates: start: 19930501, end: 20041001
  2. CLINORIL [Concomitant]
     Route: 048
  3. VICODIN [Concomitant]
     Route: 065
  4. NEURONTIN [Concomitant]
     Route: 065
  5. HYDRODIURIL [Concomitant]
     Route: 048
  6. SLOW-K [Concomitant]
     Route: 065
  7. NONSTEROIDAL ANTI-INFLAMMATORY DRUG (UNSPECIFIED) [Suspect]
     Route: 065

REACTIONS (2)
  - CHEST PAIN [None]
  - GASTRIC ULCER [None]
